FAERS Safety Report 18367873 (Version 5)
Quarter: 2021Q1

REPORT INFORMATION
  Report Type: Spontaneous
  Country: US (occurrence: US)
  Receive Date: 20201009
  Receipt Date: 20210312
  Transmission Date: 20210419
  Serious: No
  Sender: FDA-Public Use
  Company Number: US-PFIZER INC-2020389382

PATIENT
  Age: 63 Year
  Sex: Female

DRUGS (2)
  1. IBRANCE [Suspect]
     Active Substance: PALBOCICLIB
     Indication: BREAST CANCER FEMALE
     Dosage: 100 MG, CYCLIC (100MG EVERY DAY FOR 21 DAYS)
     Dates: start: 20200915
  2. IBRANCE [Suspect]
     Active Substance: PALBOCICLIB
     Dosage: 125 MG, CYCLIC (ONE A DAY) X 21 DAYS EVERY 28 DAYS)
     Dates: start: 20200916

REACTIONS (10)
  - Fatigue [Not Recovered/Not Resolved]
  - Insomnia [Unknown]
  - Faeces soft [Unknown]
  - Blood count abnormal [Not Recovered/Not Resolved]
  - White blood cell count decreased [Not Recovered/Not Resolved]
  - Pain in extremity [Unknown]
  - Neutrophil count decreased [Unknown]
  - Arthralgia [Not Recovered/Not Resolved]
  - Platelet count abnormal [Not Recovered/Not Resolved]
  - Decreased appetite [Not Recovered/Not Resolved]

NARRATIVE: CASE EVENT DATE: 202009
